FAERS Safety Report 8464143-8 (Version None)
Quarter: 2012Q2

REPORT INFORMATION
  Report Type: 
  Country: None (occurrence: None)
  Receive Date: 20120625
  Receipt Date: 20120613
  Transmission Date: 20120825
  Serious: Yes (Other)
  Sender: FDA-Public Use
  Company Number: GB-ELI_LILLY_AND_COMPANY-GB201206005390

PATIENT
  Age: 45 Year
  Sex: Female

DRUGS (2)
  1. BYETTA [Suspect]
     Indication: DIABETES MELLITUS
     Dosage: UNK, UNKNOWN
  2. INSULIN [Concomitant]
     Indication: DIABETES MELLITUS
     Dosage: 60 U, QD

REACTIONS (3)
  - VOMITING [None]
  - METABOLIC ACIDOSIS [None]
  - ABDOMINAL PAIN UPPER [None]
